FAERS Safety Report 20843910 (Version 2)
Quarter: 2022Q2

REPORT INFORMATION
  Report Type: Spontaneous
  Country: US (occurrence: US)
  Receive Date: 20220518
  Receipt Date: 20220629
  Transmission Date: 20220721
  Serious: Yes (Hospitalization, Other)
  Sender: FDA-Public Use
  Company Number: US-MALLINCKRODT-T202201880

PATIENT
  Sex: Female

DRUGS (1)
  1. H.P. ACTHAR [Suspect]
     Active Substance: CORTICOTROPIN
     Indication: Sarcoidosis
     Dosage: UNK
     Route: 065
     Dates: start: 20220217, end: 2022

REACTIONS (7)
  - Back disorder [Unknown]
  - COVID-19 [Unknown]
  - Weight fluctuation [Unknown]
  - Toothache [Unknown]
  - Back pain [Not Recovered/Not Resolved]
  - Injection site haematoma [Recovered/Resolved]
  - Product dose omission issue [Unknown]

NARRATIVE: CASE EVENT DATE: 20220101
